FAERS Safety Report 8459337-1 (Version None)
Quarter: 2012Q2

REPORT INFORMATION
  Report Type: 
  Country: None (occurrence: None)
  Receive Date: 20120622
  Receipt Date: 20120618
  Transmission Date: 20120825
  Serious: Yes (Death, Hospitalization)
  Sender: FDA-Public Use
  Company Number: FR-BAYER-2011-030542

PATIENT
  Age: 79 Year
  Sex: Male
  Weight: 57 kg

DRUGS (11)
  1. CACIT D3 [Concomitant]
     Indication: CHEST PAIN
     Dosage: 1000 IU, QD
     Route: 048
     Dates: start: 20101101
  2. PROPOXYPHENE HCL AND ACETAMINOPHEN [Concomitant]
     Indication: CHEST PAIN
     Dosage: 4 DF, QD
     Route: 048
     Dates: start: 20101101, end: 20101207
  3. DEXERYL [GLYCEROL,PARAFFIN, LIQUID,WHITE SOFT PARAFFIN] [Concomitant]
     Dosage: UNK UNK, BID
     Dates: start: 20100602, end: 20100730
  4. NEXAVAR [Suspect]
     Indication: HEPATIC NEOPLASM MALIGNANT
     Dosage: 400 MG, BID
     Route: 048
     Dates: start: 20100406, end: 20100425
  5. TAMSULOSIN HCL [Concomitant]
     Dosage: DAILY DOSE .4 MG
     Dates: start: 19960101
  6. ALFUZOSIN HCL [Concomitant]
     Dosage: 10 MG, UNK
     Dates: start: 20101228
  7. NEXAVAR [Suspect]
     Dosage: DAILY DOSE 800 MG
     Route: 048
     Dates: start: 20100603, end: 20110331
  8. ACTONEL [Concomitant]
     Indication: CHEST PAIN
     Dosage: 35 MG, QD
     Route: 048
     Dates: start: 20101101
  9. PREDNISOLONE [Concomitant]
     Indication: CHEST PAIN
     Dosage: 40 MG, QD
     Route: 048
     Dates: start: 20101101, end: 20101207
  10. ALDACTONE [Concomitant]
     Dosage: DAILY DOSE 150 MG
     Dates: start: 20100730
  11. NEXAVAR [Suspect]
     Dosage: DAILY DOSE 400 MG
     Route: 048
     Dates: start: 20110401, end: 20110409

REACTIONS (2)
  - ASCITES [None]
  - CHEST PAIN [None]
